FAERS Safety Report 5224757-5 (Version None)
Quarter: 2007Q1

REPORT INFORMATION
  Report Type: 
  Country: None (occurrence: None)
  Receive Date: 20070129
  Receipt Date: 20070129
  Transmission Date: 20070707
  Serious: Yes (Hospitalization, Other)
  Sender: FDA-Public Use
  Company Number: None

PATIENT
  Age: 57 Year
  Sex: Male
  Weight: 68.0396 kg

DRUGS (1)
  1. ALDARA [Suspect]
     Indication: PRECANCEROUS CELLS PRESENT
     Dosage: SMALL AMOUNT ON AFFECTED AREA DAILY
     Dates: start: 20061215, end: 20070124

REACTIONS (2)
  - INFLUENZA [None]
  - PLEURISY [None]
